FAERS Safety Report 9990493 (Version 2)
Quarter: 2014Q2

REPORT INFORMATION
  Report Type: Spontaneous
  Country: US (occurrence: US)
  Receive Date: 20140310
  Receipt Date: 20140422
  Transmission Date: 20141212
  Serious: No
  Sender: FDA-Public Use
  Company Number: US-PFIZER INC-2014066219

PATIENT
  Age: 67 Year
  Sex: Male

DRUGS (4)
  1. AMLODIPINE BESILATE [Suspect]
     Indication: BLOOD PRESSURE ABNORMAL
     Dosage: UNK
  2. AMLODIPINE BESILATE [Suspect]
     Indication: HYPERTENSION
  3. LIOTHYRONINE SODIUM [Suspect]
     Indication: THYROID DISORDER
     Dosage: 5 UG, 3X/DAY
     Route: 048
     Dates: start: 201312
  4. LEVOTHYROXINE SODIUM [Concomitant]
     Dosage: UNK

REACTIONS (2)
  - Skin irritation [Not Recovered/Not Resolved]
  - Seborrhoeic keratosis [Unknown]
